FAERS Safety Report 21283294 (Version 1)
Quarter: 2022Q3

REPORT INFORMATION
  Report Type: Spontaneous
  Country: US (occurrence: US)
  Receive Date: 20220901
  Receipt Date: 20220901
  Transmission Date: 20221027
  Serious: Yes (Other)
  Sender: FDA-Public Use
  Company Number: US-JNJFOC-20220855253

PATIENT

DRUGS (1)
  1. TYLENOL 8HR [Suspect]
     Active Substance: ACETAMINOPHEN
     Indication: Product used for unknown indication
     Dosage: I TOOK JUST ONE CAPLET I ONLY USES IT ONCE
     Route: 048
     Dates: start: 20220823

REACTIONS (1)
  - Foreign body in throat [Unknown]

NARRATIVE: CASE EVENT DATE: 20220823
